FAERS Safety Report 4526221-5 (Version None)
Quarter: 2004Q4

REPORT INFORMATION
  Report Type: 
  Country: None (occurrence: None)
  Receive Date: 20041213
  Receipt Date: 20041201
  Transmission Date: 20050328
  Serious: Yes (Hospitalization)
  Sender: FDA-Public Use
  Company Number: 2004102312

PATIENT
  Age: 69 Year
  Sex: Female
  Weight: 48.0813 kg

DRUGS (5)
  1. LISTERINE (METHOL, METHYL SALICYLATE, EUCALYPTOL, THYMOL) [Suspect]
     Indication: DENTAL DISORDER PROPHYLAXIS
     Dosage: 1/8 OF A CUP, BID, ORAL TOPICAL
     Route: 061
     Dates: start: 19970101
  2. COOL MINT LISTERINE POCKETPAKS (MENTHOL, METHYL SALICYLATE, EUCALYPTOL [Suspect]
     Indication: DRY MOUTH
     Dosage: ONE STRIP, PRN, ORLA TOPICAL
     Route: 061
  3. DILTIAZEM HYDROCHLORIDE [Concomitant]
  4. CLOPIDOGREL BISULFATE [Concomitant]
  5. ACETYLSALICYLIC AICD (ACETYLSALICYLIC ACID) [Concomitant]

REACTIONS (3)
  - MYOCARDIAL INFARCTION [None]
  - ORAL DISCOMFORT [None]
  - TOOTH EXTRACTION [None]
